FAERS Safety Report 11635191 (Version 1)
Quarter: 2015Q4

REPORT INFORMATION
  Report Type: Spontaneous
  Country: US (occurrence: US)
  Receive Date: 20151015
  Receipt Date: 20151015
  Transmission Date: 20160304
  Serious: No
  Sender: FDA-Public Use
  Company Number: US-SA-2015SA072140

PATIENT
  Sex: Female

DRUGS (1)
  1. LEMTRADA [Suspect]
     Active Substance: ALEMTUZUMAB
     Route: 041

REACTIONS (8)
  - Urticaria [Unknown]
  - Fatigue [Unknown]
  - Erythema [Unknown]
  - Chest discomfort [Unknown]
  - Abdominal discomfort [Unknown]
  - Swelling face [Unknown]
  - Headache [Recovering/Resolving]
  - Dyspnoea [Unknown]
